FAERS Safety Report 4973123-6 (Version None)
Quarter: 2006Q2

REPORT INFORMATION
  Report Type: 
  Country: None (occurrence: None)
  Receive Date: 20060414
  Receipt Date: 20050926
  Transmission Date: 20061013
  Serious: Yes (Hospitalization, Disabling)
  Sender: FDA-Public Use
  Company Number: US-MERCK-0509USA04145

PATIENT
  Age: 57 Year
  Sex: Female
  Weight: 86 kg

DRUGS (1)
  1. VIOXX [Suspect]
     Indication: ARTHRITIS
     Route: 048
     Dates: start: 20020101

REACTIONS (8)
  - ABSCESS [None]
  - ARTERIAL THROMBOSIS [None]
  - CEREBROVASCULAR ACCIDENT [None]
  - DIVERTICULUM [None]
  - LEUKOCYTOSIS [None]
  - NEPHROLITHIASIS [None]
  - SPLENIC ARTERY ANEURYSM [None]
  - SPLENIC INFARCTION [None]
